FAERS Safety Report 6087840-0 (Version None)
Quarter: 2009Q1

REPORT INFORMATION
  Report Type: 
  Country: None (occurrence: None)
  Receive Date: 20090219
  Receipt Date: 20081201
  Transmission Date: 20090719
  Serious: No
  Sender: FDA-Public Use
  Company Number: WAES 0804USA06475

PATIENT
  Age: 67 Year
  Sex: Male
  Weight: 79.3795 kg

DRUGS (4)
  1. JANUVIA [Suspect]
     Indication: TYPE 2 DIABETES MELLITUS
     Dosage: 100 MG/DAILY/PO
     Route: 048
     Dates: start: 20070831, end: 20070924
  2. COLACE [Concomitant]
  3. METAMUCIL [Concomitant]
  4. MYLANTA [Concomitant]

REACTIONS (2)
  - ABDOMINAL DISTENSION [None]
  - OEDEMA [None]
